FAERS Safety Report 23825953 (Version 1)
Quarter: 2024Q2

REPORT INFORMATION
  Report Type: Spontaneous
  Country: IT (occurrence: IT)
  Receive Date: 20240507
  Receipt Date: 20240507
  Transmission Date: 20240715
  Serious: Yes (Hospitalization, Other)
  Sender: FDA-Public Use
  Company Number: None

PATIENT
  Age: 15 Year
  Sex: Female
  Weight: 49 kg

DRUGS (14)
  1. ABILIFY [Suspect]
     Active Substance: ARIPIPRAZOLE
     Indication: Obsessive-compulsive disorder
     Dosage: 2.5 MG, QD
     Route: 048
     Dates: start: 20240321
  2. ABILIFY [Suspect]
     Active Substance: ARIPIPRAZOLE
     Indication: Anxiety
     Dosage: 5 MG
     Route: 065
     Dates: start: 20240326
  3. ABILIFY [Suspect]
     Active Substance: ARIPIPRAZOLE
     Dosage: 7.5 MG
     Route: 065
     Dates: start: 20240328
  4. ABILIFY [Suspect]
     Active Substance: ARIPIPRAZOLE
     Dosage: 5 + 5 MG
     Route: 065
     Dates: start: 20240330
  5. ABILIFY [Suspect]
     Active Substance: ARIPIPRAZOLE
     Dosage: 5 + 7.5 MG
     Route: 065
     Dates: start: 20240402
  6. ABILIFY [Suspect]
     Active Substance: ARIPIPRAZOLE
     Dosage: 5 + 10 MG
     Route: 065
     Dates: start: 20240403
  7. MELATONIN [Concomitant]
     Active Substance: MELATONIN
     Indication: Insomnia
     Dosage: UNK
     Route: 048
     Dates: start: 202403
  8. DELORAZEPAM [Concomitant]
     Active Substance: DELORAZEPAM
     Indication: Anxiety disorder
     Dosage: 1 MG, TID
     Route: 048
     Dates: start: 20240327
  9. DELORAZEPAM [Concomitant]
     Active Substance: DELORAZEPAM
     Dosage: 0.5 + 0.5 + 1 MG
     Route: 065
     Dates: start: 20240404
  10. DELORAZEPAM [Concomitant]
     Active Substance: DELORAZEPAM
     Dosage: 0.5 MG, TID (AT 8:00 A.M., 2:00 P.M., 9:00 P.M.)
     Route: 065
     Dates: start: 20240409
  11. LITHIUM SULFATE [Concomitant]
     Active Substance: LITHIUM SULFATE
     Indication: Suicidal ideation
     Dosage: 0.5 MG
     Route: 048
     Dates: start: 20240330
  12. LITHIUM SULFATE [Concomitant]
     Active Substance: LITHIUM SULFATE
     Dosage: 1 DF
     Route: 065
     Dates: start: 20240402
  13. LITHIUM SULFATE [Concomitant]
     Active Substance: LITHIUM SULFATE
     Dosage: 1 1/2 TABLETS
     Route: 065
     Dates: start: 20240405
  14. PERGIDAL [Concomitant]
     Indication: Constipation
     Dosage: UNK
     Route: 048
     Dates: start: 202403

REACTIONS (3)
  - Hyperaldosteronism [Unknown]
  - Renin increased [Unknown]
  - Product use in unapproved indication [Unknown]

NARRATIVE: CASE EVENT DATE: 20240321
